FAERS Safety Report 5948244-1 (Version None)
Quarter: 2008Q4

REPORT INFORMATION
  Report Type: 
  Country: None (occurrence: None)
  Receive Date: 20081111
  Receipt Date: 20081029
  Transmission Date: 20090506
  Serious: Yes (Hospitalization)
  Sender: FDA-Public Use
  Company Number: JP-ELI_LILLY_AND_COMPANY-JP200808002366

PATIENT
  Sex: Male
  Weight: 60 kg

DRUGS (8)
  1. GEMZAR [Suspect]
     Indication: BILE DUCT CANCER STAGE III
     Dosage: 1560 MG, OTHER
     Route: 042
     Dates: start: 20080208, end: 20080711
  2. OMEPRAL [Concomitant]
     Dosage: 20 MG, DAILY (1/D)
     Route: 048
     Dates: start: 20071217
  3. URSO 250 [Concomitant]
     Dosage: 300 MG, DAILY (1/D)
     Route: 048
     Dates: start: 20071217
  4. BERIZYM [Concomitant]
     Dosage: 3 D/F, DAILY (1/D)
     Route: 048
     Dates: start: 20071217
  5. BIOFERMIN [Concomitant]
     Dosage: 3 G, DAILY (1/D)
     Route: 048
     Dates: start: 20071217, end: 20080805
  6. CYTOTEC [Concomitant]
     Dosage: 800 UG, DAILY (1/D)
     Route: 048
     Dates: start: 20071229, end: 20080805
  7. PANCREATIN TRIPLE STRENGTH CAP [Concomitant]
     Dosage: 3 G, DAILY (1/D)
     Route: 048
     Dates: start: 20071229
  8. MAGLAX [Concomitant]
     Dosage: 3000 MG, DAILY (1/D)
     Route: 048
     Dates: start: 20071229

REACTIONS (3)
  - OEDEMA PERIPHERAL [None]
  - PERICARDIAL EFFUSION [None]
  - RENAL DISORDER [None]
